FAERS Safety Report 21272545 (Version 2)
Quarter: 2022Q3

REPORT INFORMATION
  Report Type: Spontaneous
  Country: PL (occurrence: PL)
  Receive Date: 20220830
  Receipt Date: 20220907
  Transmission Date: 20221027
  Serious: No
  Sender: FDA-Public Use
  Company Number: PL-Zentiva-2019-ZT-000685

PATIENT
  Age: 62 Year
  Sex: Female
  Weight: 78 kg

DRUGS (19)
  1. ATORVASTATIN [Suspect]
     Active Substance: ATORVASTATIN
     Indication: Hypertriglyceridaemia
     Dosage: 0-1-0
     Route: 065
  2. FENOFIBRATE [Suspect]
     Active Substance: FENOFIBRATE
     Indication: Hypertriglyceridaemia
     Dosage: 0-0-1
     Route: 065
  3. BISOPROLOL [Suspect]
     Active Substance: BISOPROLOL
     Indication: Hypertension
     Dosage: 1-0-0
     Route: 065
  4. BISOPROLOL [Suspect]
     Active Substance: BISOPROLOL
     Indication: Heart rate increased
  5. INDAPAMIDE\PERINDOPRIL [Suspect]
     Active Substance: INDAPAMIDE\PERINDOPRIL
     Indication: Hypertension
     Dosage: 1-0-0; PERINDOPRIL 5 MG PLUS INDAPAMIDE 1.25 MG
     Route: 065
  6. INDAPAMIDE\PERINDOPRIL [Suspect]
     Active Substance: INDAPAMIDE\PERINDOPRIL
     Indication: Heart rate increased
  7. VALSARTAN [Suspect]
     Active Substance: VALSARTAN
     Indication: Hypertension
     Dosage: 0-0-1/2
     Route: 065
  8. VALSARTAN [Suspect]
     Active Substance: VALSARTAN
     Indication: Heart rate increased
  9. ASPIRIN [Concomitant]
     Active Substance: ASPIRIN
     Indication: Product used for unknown indication
     Dosage: 0-0-1
     Route: 065
  10. METFORMIN [Concomitant]
     Active Substance: METFORMIN HYDROCHLORIDE
     Indication: Type 2 diabetes mellitus
     Dosage: 1-0-1
     Route: 065
  11. RANITIDINE [Concomitant]
     Active Substance: RANITIDINE
     Indication: Product used for unknown indication
     Dosage: 0-0-1
     Route: 065
  12. LECITHIN, SOYBEAN [Concomitant]
     Active Substance: LECITHIN, SOYBEAN
     Indication: Product used for unknown indication
     Dosage: 0-1-0
     Route: 065
  13. PENTAERYTHRITOL [Concomitant]
     Active Substance: PENTAERYTHRITOL
     Indication: Product used for unknown indication
     Dosage: 1-0-0
     Route: 065
  14. SULPIRIDE [Concomitant]
     Active Substance: SULPIRIDE
     Indication: Product used for unknown indication
     Dosage: 1-0-0
     Route: 065
  15. POTASSIUM CHLORIDE [Concomitant]
     Active Substance: POTASSIUM CHLORIDE
     Indication: Product used for unknown indication
     Dosage: 0-1-0
     Route: 065
  16. CINNARIZINE [Concomitant]
     Active Substance: CINNARIZINE
     Indication: Product used for unknown indication
     Dosage: 1-1-1
     Route: 065
  17. GLUCOSAMINE SULFATE;POTASSIUM CHLORIDE;VITAMIN C [Concomitant]
     Indication: Product used for unknown indication
     Dosage: GLUCOSAMINE SULFATE 500 MG PLUS POTASSIUM CHLORIDE 166.7 MG PLUS VITAMIN C 20 MG (0-1-0)
     Route: 065
  18. GLICLAZIDE [Concomitant]
     Active Substance: GLICLAZIDE
     Indication: Type 2 diabetes mellitus
     Dosage: 2-0-0
     Route: 065
  19. MAGNESIUM LACTATE;PYRIDOXINE [Concomitant]
     Indication: Product used for unknown indication
     Dosage: MAGNESIUM LACTATE 470 MG PLUS PYRIDOXINE 5 MG (0-1-0)
     Route: 065

REACTIONS (2)
  - Alanine aminotransferase increased [Recovered/Resolved]
  - Drug ineffective [Unknown]
